FAERS Safety Report 18549138 (Version 1)
Quarter: 2020Q4

REPORT INFORMATION
  Report Type: Report from Study
  Country: US (occurrence: US)
  Receive Date: 20201126
  Receipt Date: 20201126
  Transmission Date: 20210114
  Serious: Yes (Hospitalization, Other)
  Sender: FDA-Public Use
  Company Number: US-ACCORD-208449

PATIENT
  Age: 23 Year
  Sex: Female

DRUGS (2)
  1. DOCETAXEL. [Suspect]
     Active Substance: DOCETAXEL
     Indication: OSTEOSARCOMA
     Dosage: SYSTEMIC, 6 CYCLE
  2. GEMCITABINE/GEMCITABINE HYDROCHLORIDE [Suspect]
     Active Substance: GEMCITABINE\GEMCITABINE HYDROCHLORIDE
     Indication: OSTEOSARCOMA
     Dosage: 900MG/M2 ON DAYS 1 AND 8 OF 21-DAY CYCLE

REACTIONS (5)
  - Alopecia [Unknown]
  - Oedema [Unknown]
  - Off label use [Unknown]
  - Dacryostenosis acquired [Unknown]
  - Capillary leak syndrome [Unknown]
